FAERS Safety Report 5699207-5 (Version None)
Quarter: 2008Q2

REPORT INFORMATION
  Report Type: 
  Country: None (occurrence: None)
  Receive Date: 20080407
  Receipt Date: 20080407
  Transmission Date: 20081010
  Serious: No
  Sender: FDA-Public Use
  Company Number: None

PATIENT
  Age: 82 Year
  Sex: Female

DRUGS (11)
  1. SULFAMETHOXAZOLE TRIMETHOPRIM [Suspect]
     Dates: start: 20070822, end: 20070831
  2. DIPHENHYDRAMINE HYDROCHLORIDE [Concomitant]
  3. KLOR-CON [Concomitant]
  4. LEVOTHYROXINE SODIUM [Concomitant]
  5. DILTIAZEM [Concomitant]
  6. HYDROCHLOROTHIAZIDE [Concomitant]
  7. NAPROXEN [Concomitant]
  8. ZOSYN [Concomitant]
  9. PHENERGAN [Concomitant]
  10. FAMOTIDINE [Concomitant]
  11. BENADRYL [Concomitant]

REACTIONS (10)
  - ALANINE AMINOTRANSFERASE INCREASED [None]
  - ASPARTATE AMINOTRANSFERASE INCREASED [None]
  - ASTHENIA [None]
  - BLOOD ALKALINE PHOSPHATASE INCREASED [None]
  - BLOOD BILIRUBIN INCREASED [None]
  - BLOOD CREATININE INCREASED [None]
  - CHROMATURIA [None]
  - EOSINOPHILIA [None]
  - LIVER DISORDER [None]
  - NAUSEA [None]
